FAERS Safety Report 24163993 (Version 1)
Quarter: 2024Q3

REPORT INFORMATION
  Report Type: Spontaneous
  Country: US (occurrence: US)
  Receive Date: 20240801
  Receipt Date: 20240801
  Transmission Date: 20241017
  Serious: No
  Sender: UPSHER-SMITH
  Company Number: US-UPSHER-SMITH LABORATORIES, LLC-2023USL00983

PATIENT
  Age: 0 Year
  Sex: Male

DRUGS (2)
  1. VIGADRONE [Suspect]
     Active Substance: VIGABATRIN
     Indication: Seizure
     Dosage: 250 MG (5 ML) BY MOUTH TWICE DAILY AS DIRECTED.
     Route: 048
     Dates: start: 20231028, end: 20231114
  2. PREDNISONE [Concomitant]
     Active Substance: PREDNISONE
     Dosage: UNK, CONCOMITANT USE [WITH VIGADRONE] OF APPROXIMATELY 1 WEEK
     Dates: end: 202311

REACTIONS (4)
  - Hypersensitivity [Recovering/Resolving]
  - Stomatitis [Recovering/Resolving]
  - Rash [Recovering/Resolving]
  - Therapeutic product effect incomplete [Recovered/Resolved]

NARRATIVE: CASE EVENT DATE: 20231028
